FAERS Safety Report 9023882 (Version 2)
Quarter: 2013Q1

REPORT INFORMATION
  Report Type: Spontaneous
  Country: FR (occurrence: FR)
  Receive Date: 20130121
  Receipt Date: 20130219
  Transmission Date: 20140127
  Serious: Yes (Hospitalization, Other)
  Sender: FDA-Public Use
  Company Number: FR-ELI_LILLY_AND_COMPANY-FR201301003300

PATIENT
  Age: 84 Year
  Sex: Female

DRUGS (6)
  1. FORSTEO [Suspect]
     Indication: OSTEOPOROTIC FRACTURE
     Dosage: 20 UG, QD
     Dates: start: 20110601
  2. PREVISCAN [Concomitant]
  3. CORDARONE [Concomitant]
  4. STABLON [Concomitant]
  5. ALPRAZOLAM [Concomitant]
  6. INEXIUM [Concomitant]

REACTIONS (6)
  - Sepsis [Unknown]
  - Spinal fracture [Unknown]
  - Fractured sacrum [Unknown]
  - Fall [Unknown]
  - Lower limb fracture [Not Recovered/Not Resolved]
  - Phlebitis [Not Recovered/Not Resolved]
